FAERS Safety Report 20758986 (Version 1)
Quarter: 2022Q2

REPORT INFORMATION
  Report Type: Spontaneous
  Country: US (occurrence: US)
  Receive Date: 20220427
  Receipt Date: 20220427
  Transmission Date: 20220721
  Serious: No
  Sender: FDA-Public Use
  Company Number: US-PFIZER INC-202101464006

PATIENT
  Age: 69 Year
  Sex: Female
  Weight: 81.65 kg

DRUGS (1)
  1. EUCRISA [Suspect]
     Active Substance: CRISABOROLE
     Indication: Eczema
     Dosage: UNK UNK, 2X/DAY (APPLY TOPICALLY MORNING AND NIGHT OR AS NEEDED)
     Route: 061
     Dates: start: 2019, end: 202103

REACTIONS (3)
  - Rash [Recovered/Resolved]
  - Pruritus [Recovered/Resolved]
  - Allergy to chemicals [Recovered/Resolved]

NARRATIVE: CASE EVENT DATE: 20210201
